FAERS Safety Report 16038766 (Version 2)
Quarter: 2019Q2

REPORT INFORMATION
  Report Type: Spontaneous
  Country: US (occurrence: US)
  Receive Date: 20190305
  Receipt Date: 20190502
  Transmission Date: 20190711
  Serious: No
  Sender: FDA-Public Use
  Company Number: US-AMGEN-USASP2019034246

PATIENT
  Age: 22 Month
  Sex: Female
  Weight: 10.8 kg

DRUGS (3)
  1. NEULASTA [Suspect]
     Active Substance: PEGFILGRASTIM
     Indication: NEUTROPENIA
     Dosage: 1 MILLIGRAM
     Route: 058
     Dates: start: 20181118
  2. ARA-C [Concomitant]
     Active Substance: CYTARABINE
     Dosage: UNK
  3. NEULASTA [Suspect]
     Active Substance: PEGFILGRASTIM
     Dosage: 0.5 MILLIGRAM
     Route: 065
     Dates: start: 2019

REACTIONS (1)
  - Wrong technique in product usage process [Unknown]

NARRATIVE: CASE EVENT DATE: 20190227
